FAERS Safety Report 8571412-X (Version None)
Quarter: 2012Q3

REPORT INFORMATION
  Report Type: 
  Country: None (occurrence: None)
  Receive Date: 20120806
  Receipt Date: 20120730
  Transmission Date: 20120928
  Serious: Yes (Other)
  Sender: FDA-Public Use
  Company Number: US-JNJFOC-20120801426

PATIENT
  Age: 28 Year
  Sex: Female
  Weight: 76.2 kg

DRUGS (2)
  1. ZYRTEC [Suspect]
     Route: 048
  2. ZYRTEC [Suspect]
     Indication: MULTIPLE ALLERGIES
     Route: 048
     Dates: end: 20120728

REACTIONS (4)
  - PAIN [None]
  - WITHDRAWAL SYNDROME [None]
  - HEADACHE [None]
  - OFF LABEL USE [None]
